FAERS Safety Report 7421859-X (Version None)
Quarter: 2011Q2

REPORT INFORMATION
  Report Type: 
  Country: None (occurrence: None)
  Receive Date: 20110418
  Receipt Date: 20110404
  Transmission Date: 20111010
  Serious: Yes (Other)
  Sender: FDA-Public Use
  Company Number: IL-GENENTECH-316259

PATIENT
  Age: 57 Year
  Sex: Male

DRUGS (1)
  1. XOLAIR [Suspect]
     Indication: ASTHMA
     Dosage: 375 MG, Q2W
     Route: 058
     Dates: start: 20110118

REACTIONS (7)
  - EOSINOPHILIA [None]
  - ALLERGIC GRANULOMATOUS ANGIITIS [None]
  - RASH [None]
  - EOSINOPHILIC PNEUMONIA CHRONIC [None]
  - DYSPNOEA [None]
  - BRONCHOPULMONARY ASPERGILLOSIS ALLERGIC [None]
  - SYSTEMIC LUPUS ERYTHEMATOSUS [None]
